FAERS Safety Report 23917866 (Version 1)
Quarter: 2024Q2

REPORT INFORMATION
  Report Type: Spontaneous
  Country: US (occurrence: US)
  Receive Date: 20240530
  Receipt Date: 20240530
  Transmission Date: 20240716
  Serious: Yes (Hospitalization)
  Sender: FDA-Public Use
  Company Number: US-AMGEN-USASP2024103796

PATIENT
  Age: 56 Year
  Sex: Male

DRUGS (1)
  1. REPATHA [Suspect]
     Active Substance: EVOLOCUMAB
     Indication: Product used for unknown indication
     Dosage: UNK UNK, Q2WK (EVERY OTHER TUESDAY)
     Route: 065

REACTIONS (3)
  - Back pain [Unknown]
  - Hypertension [Unknown]
  - Optic ischaemic neuropathy [Unknown]

NARRATIVE: CASE EVENT DATE: 20240518
